FAERS Safety Report 10025807 (Version 2)
Quarter: 2014Q1

REPORT INFORMATION
  Report Type: Spontaneous
  Country: US (occurrence: US)
  Receive Date: 20140320
  Receipt Date: 20140320
  Transmission Date: 20141002
  Serious: Yes (Disabling)
  Sender: FDA-Public Use
  Company Number: US-GE HEALTHCARE MEDICAL DIAGNOSTICS-OSCN-PR-0802S-0068

PATIENT
  Age: 46 Year
  Sex: Male
  Weight: 82 kg

DRUGS (5)
  1. OMNISCAN [Suspect]
     Indication: PAIN
     Route: 042
     Dates: start: 20051105, end: 20051105
  2. OMNISCAN [Suspect]
     Indication: OSTEOMYELITIS
     Route: 042
     Dates: start: 20051114, end: 20051114
  3. OMNISCAN [Suspect]
     Indication: PRODUCT USED FOR UNKNOWN INDICATION
     Route: 042
     Dates: start: 20060515, end: 20060515
  4. MAGNEVIST [Suspect]
     Indication: RENAL FAILURE ACUTE
     Route: 042
     Dates: start: 20061011, end: 20061011
  5. MAGNEVIST [Suspect]
     Route: 042
     Dates: start: 20061012, end: 20061012

REACTIONS (1)
  - Nephrogenic systemic fibrosis [Not Recovered/Not Resolved]
